FAERS Safety Report 17430781 (Version 1)
Quarter: 2020Q1

REPORT INFORMATION
  Report Type: Spontaneous
  Country: US (occurrence: US)
  Receive Date: 20200217
  Receipt Date: 20200217
  Transmission Date: 20200409
  Serious: Yes (Other)
  Sender: FDA-Public Use
  Company Number: None

PATIENT
  Age: 34 Year
  Sex: Female
  Weight: 47.25 kg

DRUGS (4)
  1. PREMARIN [Concomitant]
     Active Substance: ESTROGENS, CONJUGATED
  2. EMGALITY [Suspect]
     Active Substance: GALCANEZUMAB-GNLM
     Indication: MIGRAINE
     Dosage: ?          QUANTITY:1 INJECTION;OTHER FREQUENCY:EVERY 30 DAYS;?
     Route: 058
     Dates: start: 20190910, end: 20191115
  3. IBUPROFEN. [Concomitant]
     Active Substance: IBUPROFEN
  4. ATIVAN [Suspect]
     Active Substance: LORAZEPAM

REACTIONS (3)
  - Alopecia [None]
  - Therapeutic product effect decreased [None]
  - Urticaria [None]

NARRATIVE: CASE EVENT DATE: 20191001
